FAERS Safety Report 12079716 (Version 1)
Quarter: 2016Q1

REPORT INFORMATION
  Report Type: Spontaneous
  Country: US (occurrence: US)
  Receive Date: 20160216
  Receipt Date: 20160216
  Transmission Date: 20160526
  Serious: Yes (Other)
  Sender: FDA-Public Use
  Company Number: US-PFIZER INC-2016090383

PATIENT
  Age: 76 Year
  Sex: Female

DRUGS (3)
  1. PREMARIN [Suspect]
     Active Substance: ESTROGENS, CONJUGATED
     Indication: HORMONE REPLACEMENT THERAPY
     Dosage: 0.3 MG, 1X/DAY
     Route: 048
     Dates: end: 2005
  2. ENOVID [Suspect]
     Active Substance: MESTRANOL\NORETHYNODREL
     Dosage: UNK
  3. PROMETRIUM [Suspect]
     Active Substance: PROGESTERONE
     Indication: HORMONE REPLACEMENT THERAPY
     Dosage: 100 MG, 1X/DAY
     Route: 048
     Dates: end: 2006

REACTIONS (1)
  - Breast cancer in situ [Unknown]
